FAERS Safety Report 6236284-7 (Version None)
Quarter: 2009Q2

REPORT INFORMATION
  Report Type: 
  Country: None (occurrence: None)
  Receive Date: 20090619
  Receipt Date: 20090611
  Transmission Date: 20091009
  Serious: Yes (Hospitalization)
  Sender: FDA-Public Use
  Company Number: CA-PFIZER INC-2009226020

PATIENT
  Age: 72 Year

DRUGS (3)
  1. LIPITOR [Suspect]
     Dosage: 20 MG, UNK
     Dates: end: 20090101
  2. LIPITOR [Suspect]
     Dosage: 80 MG, UNK
     Dates: start: 20090101
  3. METOPROLOL [Concomitant]

REACTIONS (3)
  - DUODENAL PERFORATION [None]
  - MYOCARDIAL INFARCTION [None]
  - RHABDOMYOLYSIS [None]
